FAERS Safety Report 13637229 (Version 2)
Quarter: 2017Q2

REPORT INFORMATION
  Report Type: Spontaneous
  Country: US (occurrence: US)
  Receive Date: 20170609
  Receipt Date: 20170623
  Transmission Date: 20170830
  Serious: No
  Sender: FDA-Public Use
  Company Number: PHEH2017US015874

PATIENT
  Sex: Female

DRUGS (1)
  1. PROMACTA [Suspect]
     Active Substance: ELTROMBOPAG OLAMINE
     Indication: IMMUNE THROMBOCYTOPENIC PURPURA
     Dosage: 50 MG, QD
     Route: 048
     Dates: start: 20170524

REACTIONS (6)
  - Diarrhoea [Unknown]
  - Pain of skin [Unknown]
  - Nausea [Unknown]
  - Vomiting [Unknown]
  - Skin lesion [Unknown]
  - Decreased appetite [Unknown]
